FAERS Safety Report 21796047 (Version 1)
Quarter: 2022Q4

REPORT INFORMATION
  Report Type: Spontaneous
  Country: CN (occurrence: CN)
  Receive Date: 20221229
  Receipt Date: 20221229
  Transmission Date: 20230113
  Serious: Yes (Other)
  Sender: FDA-Public Use
  Company Number: CN-009507513-2212CHN008390

PATIENT
  Age: 9 Year
  Sex: Male
  Weight: 30 kg

DRUGS (3)
  1. NOXAFIL [Suspect]
     Active Substance: POSACONAZOLE
     Indication: Oral fungal infection
     Dosage: 300 MG, BID
     Route: 048
     Dates: start: 20221111, end: 20221112
  2. AMPHOTERICIN B [Concomitant]
     Active Substance: AMPHOTERICIN B
     Indication: Oral fungal infection
     Dosage: 3MG/DAY INITIAL DOSE + 5% GLUCOSE INJECTION 250ML, IV DRIP
     Route: 041
     Dates: start: 20221101, end: 20221111
  3. DEXTROSE [Concomitant]
     Active Substance: DEXTROSE
     Dosage: 250ML
     Route: 041

REACTIONS (9)
  - Conjunctival hyperaemia [Recovered/Resolved]
  - Hyperpyrexia [Recovered/Resolved]
  - Rash maculo-papular [Recovered/Resolved]
  - Rash pruritic [Recovered/Resolved]
  - Nausea [Recovered/Resolved]
  - Chills [Unknown]
  - Pyrexia [Recovered/Resolved]
  - Product use issue [Unknown]
  - Product use in unapproved indication [Unknown]

NARRATIVE: CASE EVENT DATE: 20221111
